FAERS Safety Report 18593866 (Version 2)
Quarter: 2020Q4

REPORT INFORMATION
  Report Type: Spontaneous
  Country: ES (occurrence: ES)
  Receive Date: 20201209
  Receipt Date: 20201214
  Transmission Date: 20210114
  Serious: Yes (Other)
  Sender: FDA-Public Use
  Company Number: ES-BAUSCH-BL-2020-035339

PATIENT
  Age: 12 Year
  Sex: Male

DRUGS (7)
  1. PHENYTOIN. [Suspect]
     Active Substance: PHENYTOIN
     Indication: SUBDURAL ABSCESS
     Route: 065
  2. ACYCLOVIR [ACICLOVIR] [Concomitant]
     Active Substance: ACYCLOVIR
     Indication: ENCEPHALITIS
  3. CEFOTAXIME [Suspect]
     Active Substance: CEFOTAXIME SODIUM
     Indication: ENCEPHALITIS
     Route: 065
  4. METRONIDAZOLE. [Suspect]
     Active Substance: METRONIDAZOLE
     Indication: SUBDURAL ABSCESS
     Route: 065
  5. MANNITOL. [Suspect]
     Active Substance: MANNITOL
     Indication: SUBDURAL ABSCESS
     Route: 065
  6. DEXAMETHASONE. [Suspect]
     Active Substance: DEXAMETHASONE
     Indication: SUBDURAL ABSCESS
     Route: 065
  7. VANCOMYCIN HCL [Suspect]
     Active Substance: VANCOMYCIN HYDROCHLORIDE
     Indication: SUBDURAL ABSCESS
     Route: 065

REACTIONS (7)
  - Leukopenia [Unknown]
  - Transaminases increased [Unknown]
  - Pyrexia [Unknown]
  - Rash [Unknown]
  - Drug hypersensitivity [Unknown]
  - Vomiting [Unknown]
  - Abdominal pain [Unknown]
